FAERS Safety Report 15585724 (Version 1)
Quarter: 2018Q4

REPORT INFORMATION
  Report Type: Spontaneous
  Country: IN (occurrence: IN)
  Receive Date: 20181105
  Receipt Date: 20181105
  Transmission Date: 20190205
  Serious: Yes (Hospitalization)
  Sender: FDA-Public Use
  Company Number: IN-PFIZER INC-2018447282

PATIENT
  Age: 45 Year
  Sex: Male

DRUGS (26)
  1. RANITIDINE. [Concomitant]
     Active Substance: RANITIDINE
     Dosage: 50 MG, 2X/DAY
  2. NORMAL SALINE [Concomitant]
     Active Substance: SODIUM CHLORIDE
     Dosage: UNK (2 PINTS)
  3. DIAZEPAM. [Concomitant]
     Active Substance: DIAZEPAM
     Dosage: 5 MG, UNK (3-3-4) TAB
  4. RANITIDINE. [Concomitant]
     Active Substance: RANITIDINE
     Dosage: 50 MG, 2X/DAY
  5. VITAMIN B12 [Concomitant]
     Active Substance: CYANOCOBALAMIN
     Dosage: 100 MG, 1X/DAY
     Route: 030
  6. DEXAMETHASONE. [Concomitant]
     Active Substance: DEXAMETHASONE
     Dosage: 8 MG, 2X/DAY
  7. HALOPERIDOL. [Concomitant]
     Active Substance: HALOPERIDOL
     Dosage: 1.5 MG, 2X/DAY
  8. LACTATED RINGERS SOLUTION [Concomitant]
     Active Substance: CALCIUM CHLORIDE\POTASSIUM CHLORIDE\SODIUM CHLORIDE\SODIUM LACTATE
     Dosage: UNK (2 PINTS)
     Route: 042
  9. PHENYTOIN SODIUM. [Suspect]
     Active Substance: PHENYTOIN SODIUM
     Dosage: 100 MG, UNK
  10. NORMAL SALINE [Concomitant]
     Active Substance: SODIUM CHLORIDE
     Dosage: UNK (1 PINT)
     Route: 042
  11. DIAZEPAM. [Concomitant]
     Active Substance: DIAZEPAM
     Dosage: 5 MG, UNK (3-3-4) TAB
  12. RANITIDINE. [Concomitant]
     Active Substance: RANITIDINE
     Dosage: 50 MG, 2X/DAY
  13. THIAMINE. [Concomitant]
     Active Substance: THIAMINE
     Dosage: 100 MG, UNK (IN 100ML OF NORMAL SALINE)
  14. PHENYTOIN SODIUM. [Suspect]
     Active Substance: PHENYTOIN SODIUM
     Indication: SEIZURE
     Dosage: 600 MG (IN 1PINT OF NS INFUSED FOR 1HOUR)
  15. VITAMIN B12 [Concomitant]
     Active Substance: CYANOCOBALAMIN
     Dosage: 100 MG, 1X/DAY
     Route: 030
  16. B-COMPLEX [VITAMIN B COMPLEX] [Concomitant]
     Dosage: UNK, 2X/DAY
  17. PHENERGAN [PROMETHAZINE] [Concomitant]
     Dosage: 12.5 MG, 2X/DAY
     Route: 030
  18. DIAZEPAM. [Concomitant]
     Active Substance: DIAZEPAM
     Dosage: 1 MG, UNK (1MG DILUTED IN 10ML OF NS IV SOS)
  19. ONDANSETRON [Concomitant]
     Active Substance: ONDANSETRON
     Dosage: 10 MG, UNK (SOS)
     Route: 042
  20. THIAMINE. [Concomitant]
     Active Substance: THIAMINE
     Dosage: 100 MG, UNK (IN 1PINT NORMAL SALINE OVER ONE HOUR)
  21. DEXAMETHASONE. [Concomitant]
     Active Substance: DEXAMETHASONE
     Dosage: 8 MG, 2X/DAY
  22. HALOPERIDOL. [Concomitant]
     Active Substance: HALOPERIDOL
     Dosage: 1.5 MG, 2X/DAY
  23. CALCIUM [Concomitant]
     Active Substance: CALCIUM
     Dosage: 300 MG, 1X/DAY
  24. B-COMPLEX [VITAMIN B COMPLEX] [Concomitant]
     Dosage: UNK (2-2-2)
  25. PHENERGAN [PROMETHAZINE] [Concomitant]
     Dosage: 12.5 MG, 2X/DAY
     Route: 030
  26. DNS [Concomitant]
     Dosage: UNK (10% DNS 1 PINT)

REACTIONS (1)
  - Substance-induced psychotic disorder [Recovered/Resolved]
